FAERS Safety Report 18288173 (Version 3)
Quarter: 2021Q1

REPORT INFORMATION
  Report Type: Spontaneous
  Country: US (occurrence: US)
  Receive Date: 20200921
  Receipt Date: 20210303
  Transmission Date: 20210419
  Serious: Yes (Hospitalization)
  Sender: FDA-Public Use
  Company Number: US-SA-2020SA257029

PATIENT
  Age: 56 Year
  Sex: Male

DRUGS (1)
  1. DUPIXENT [Suspect]
     Active Substance: DUPILUMAB
     Dosage: 300 MG, QOW
     Route: 058
     Dates: start: 20200724

REACTIONS (2)
  - Dyspnoea [Recovered/Resolved]
  - Product dose omission issue [Unknown]
